FAERS Safety Report 11909687 (Version 1)
Quarter: 2016Q1

REPORT INFORMATION
  Report Type: Spontaneous
  Country: US (occurrence: None)
  Receive Date: 20160111
  Receipt Date: 20160111
  Transmission Date: 20160526
  Serious: Yes (Hospitalization)
  Sender: FDA-Public Use
  Company Number: None

PATIENT
  Age: 43 Year
  Sex: Female
  Weight: 79.38 kg

DRUGS (7)
  1. HYDROCHLOROTHIAZIDE 25 MG UNKNOWN AT THIS MOMENT [Suspect]
     Active Substance: HYDROCHLOROTHIAZIDE
     Indication: DRUG THERAPY
     Route: 048
     Dates: start: 20151130, end: 20160101
  2. HYDRALAZINE [Concomitant]
     Active Substance: HYDRALAZINE HYDROCHLORIDE
  3. AMLODIPINE BESYLATE. [Concomitant]
     Active Substance: AMLODIPINE BESYLATE
  4. LISINOPRIL. [Concomitant]
     Active Substance: LISINOPRIL
  5. SYNTHROID [Concomitant]
     Active Substance: LEVOTHYROXINE SODIUM
  6. PAXEL [Concomitant]
     Active Substance: PACLITAXEL
  7. ALTENOLOL [Concomitant]

REACTIONS (4)
  - Hypertension [None]
  - Adverse drug reaction [None]
  - Renal failure [None]
  - Malaise [None]

NARRATIVE: CASE EVENT DATE: 20160105
